FAERS Safety Report 11945159 (Version 1)
Quarter: 2016Q1

REPORT INFORMATION
  Report Type: Spontaneous
  Country: JP (occurrence: JP)
  Receive Date: 20160125
  Receipt Date: 20160125
  Transmission Date: 20160526
  Serious: Yes (Other)
  Sender: FDA-Public Use
  Company Number: JP-BAYER-2016-010151

PATIENT
  Age: 18 Year
  Sex: Female

DRUGS (1)
  1. YAZ [Suspect]
     Active Substance: DROSPIRENONE\ETHINYL ESTRADIOL
     Dosage: UNK
     Route: 048
     Dates: start: 20151128

REACTIONS (4)
  - Tachycardia [None]
  - Chest pain [None]
  - Syncope [None]
  - Chills [None]

NARRATIVE: CASE EVENT DATE: 20160111
